FAERS Safety Report 11889639 (Version 1)
Quarter: 2016Q1

REPORT INFORMATION
  Report Type: Spontaneous
  Country: GB (occurrence: GB)
  Receive Date: 20160105
  Receipt Date: 20160105
  Transmission Date: 20160526
  Serious: Yes (Other)
  Sender: FDA-Public Use
  Company Number: GB-SA-2016SA000528

PATIENT
  Sex: Male

DRUGS (1)
  1. FLUDARABINE PHOSPHATE. [Suspect]
     Active Substance: FLUDARABINE PHOSPHATE
     Indication: BONE MARROW CONDITIONING REGIMEN
     Route: 042

REACTIONS (3)
  - Confusional state [Unknown]
  - Delirium [Unknown]
  - Agitation [Unknown]
